FAERS Safety Report 9385205 (Version 1)
Quarter: 2013Q3

REPORT INFORMATION
  Report Type: Spontaneous
  Country: US (occurrence: US)
  Receive Date: 20130705
  Receipt Date: 20130705
  Transmission Date: 20140515
  Serious: Yes (Hospitalization)
  Sender: FDA-Public Use
  Company Number: US-GLAXOSMITHKLINE-A0787825A

PATIENT
  Age: 54 Year
  Sex: Female
  Weight: 85.5 kg

DRUGS (1)
  1. AVANDIA [Suspect]
     Indication: DIABETES MELLITUS
     Dosage: 8MG PER DAY
     Route: 048
     Dates: start: 199908, end: 200311

REACTIONS (2)
  - Myocardial infarction [Unknown]
  - Angina pectoris [Unknown]
